FAERS Safety Report 16478467 (Version 2)
Quarter: 2019Q3

REPORT INFORMATION
  Report Type: Spontaneous
  Country: DE (occurrence: DE)
  Receive Date: 20190626
  Receipt Date: 20190717
  Transmission Date: 20191004
  Serious: Yes (Hospitalization, Other)
  Sender: FDA-Public Use
  Company Number: DE-MYLANLABS-2019M1058031

PATIENT
  Age: 9 Year
  Sex: Female
  Weight: 28 kg

DRUGS (7)
  1. LAMOTRIGINE. [Suspect]
     Active Substance: LAMOTRIGINE
     Indication: EPILEPSY
     Dosage: UNK
     Dates: end: 201712
  2. ORFIRIL [Suspect]
     Active Substance: VALPROATE SODIUM
     Indication: EPILEPSY
     Dosage: UNK
     Route: 048
     Dates: start: 2017
  3. OSPOLOT [Suspect]
     Active Substance: SULTHIAME
     Indication: EPILEPSY
     Dosage: UNK
     Dates: start: 201712, end: 201801
  4. ORFIRIL [Suspect]
     Active Substance: VALPROATE SODIUM
     Dosage: 900 MILLIGRAM, QD (450-0-450)
     Route: 048
     Dates: start: 201710
  5. PETNIDAN [Suspect]
     Active Substance: ETHOSUXIMIDE
     Indication: EPILEPSY
     Dosage: REDUCED BY 250 MG IN THE EVENING
     Route: 048
     Dates: start: 201801, end: 201807
  6. PETNIDAN [Suspect]
     Active Substance: ETHOSUXIMIDE
     Dosage: 1250 MILLIGRAM, QD (500 MG, 750 MG)
     Route: 048
     Dates: start: 201807
  7. PETNIDAN [Suspect]
     Active Substance: ETHOSUXIMIDE
     Indication: EPILEPSY
     Dosage: UNK
     Route: 065
     Dates: start: 201612

REACTIONS (7)
  - Dyspnoea [Unknown]
  - Dizziness [Unknown]
  - Drug ineffective [Recovered/Resolved]
  - Inappropriate schedule of product administration [Recovered/Resolved]
  - Abdominal pain [Unknown]
  - Seizure [Recovered/Resolved]
  - Epilepsy [Recovered/Resolved]

NARRATIVE: CASE EVENT DATE: 201710
